FAERS Safety Report 15413594 (Version 1)
Quarter: 2018Q3

REPORT INFORMATION
  Report Type: Spontaneous
  Country: JP (occurrence: JP)
  Receive Date: 20180921
  Receipt Date: 20180921
  Transmission Date: 20181010
  Serious: Yes (Other)
  Sender: FDA-Public Use
  Company Number: JP-OTSUKA-14525059

PATIENT
  Age: 51 Year
  Sex: Female

DRUGS (30)
  1. ABILIFY [Suspect]
     Active Substance: ARIPIPRAZOLE
     Dosage: 18 MG, QD
     Route: 048
  2. DANTROLENE SODIUM. [Concomitant]
     Active Substance: DANTROLENE SODIUM
     Indication: DYSTONIA
  3. TRIHEXYPHENIDYL HYDROCHLORIDE. [Concomitant]
     Active Substance: TRIHEXYPHENIDYL HYDROCHLORIDE
     Indication: DYSTONIA
     Dosage: TITRATED UP TO 30 MG/DAY
     Route: 048
  4. CLONAZEPAM. [Concomitant]
     Active Substance: CLONAZEPAM
     Indication: DYSTONIA
     Dosage: 2 MG, QD
     Route: 048
  5. GABAPENTIN. [Concomitant]
     Active Substance: GABAPENTIN
     Indication: DYSKINESIA
     Dosage: 1200 MG, QD
     Route: 048
  6. ABILIFY [Suspect]
     Active Substance: ARIPIPRAZOLE
     Dosage: INCREASED UP TO 30 MG/DAY
     Route: 048
  7. CLONAZEPAM. [Concomitant]
     Active Substance: CLONAZEPAM
     Indication: DYSTONIA
     Dosage: TITRATED UP TO 10 MG/DAY
     Route: 048
  8. CARBAMAZEPINE. [Concomitant]
     Active Substance: CARBAMAZEPINE
     Indication: PERSECUTORY DELUSION
     Dosage: 400 MG, QD
     Route: 048
  9. DANTROLENE SODIUM. [Concomitant]
     Active Substance: DANTROLENE SODIUM
     Indication: DYSKINESIA
     Dosage: 75 MG, QD
     Route: 048
  10. QUETIAPINE FUMARATE. [Concomitant]
     Active Substance: QUETIAPINE FUMARATE
     Dosage: 600 MG, QD
     Route: 048
  11. FLUNITRAZEPAM [Concomitant]
     Active Substance: FLUNITRAZEPAM
     Indication: PRODUCT USED FOR UNKNOWN INDICATION
     Dosage: 2 MG, QD
     Route: 065
  12. ABILIFY [Suspect]
     Active Substance: ARIPIPRAZOLE
     Indication: SCHIZOPHRENIA
     Dosage: 12 MG, QD
     Route: 048
  13. ABILIFY [Suspect]
     Active Substance: ARIPIPRAZOLE
     Dosage: UNK, TITRATED DOWN UNTIL ITS WITHDRAWAL
     Route: 048
  14. ABILIFY [Suspect]
     Active Substance: ARIPIPRAZOLE
     Dosage: 6 MG, QD
  15. TRIHEXYPHENIDYL HYDROCHLORIDE. [Concomitant]
     Active Substance: TRIHEXYPHENIDYL HYDROCHLORIDE
     Dosage: 6 MG, QD
     Route: 048
  16. CLONAZEPAM. [Concomitant]
     Active Substance: CLONAZEPAM
     Dosage: 6 MG, QD
     Route: 048
  17. ZOTEPINE [Concomitant]
     Active Substance: ZOTEPINE
     Indication: SCHIZOPHRENIA
     Dosage: 100 MG, QD
     Route: 048
  18. ZOTEPINE [Concomitant]
     Active Substance: ZOTEPINE
     Dosage: 150 MG, QD
     Route: 048
  19. ZOTEPINE [Concomitant]
     Active Substance: ZOTEPINE
     Dosage: UNK
     Route: 048
  20. QUETIAPINE FUMARATE. [Concomitant]
     Active Substance: QUETIAPINE FUMARATE
     Dosage: 750 MG, QD
     Route: 048
  21. GABAPENTIN. [Concomitant]
     Active Substance: GABAPENTIN
     Dosage: 1800 MG, QD
     Route: 048
  22. TRIHEXYPHENIDYL HYDROCHLORIDE. [Concomitant]
     Active Substance: TRIHEXYPHENIDYL HYDROCHLORIDE
     Indication: DYSKINESIA
     Dosage: 6 MG, QD
     Route: 048
  23. ZOTEPINE [Concomitant]
     Active Substance: ZOTEPINE
     Dosage: 125 MG, QD
     Route: 048
  24. DIAZEPAM. [Concomitant]
     Active Substance: DIAZEPAM
     Indication: PRODUCT USED FOR UNKNOWN INDICATION
     Dosage: 15 MG, QD
     Route: 065
  25. QUETIAPINE FUMARATE. [Concomitant]
     Active Substance: QUETIAPINE FUMARATE
     Dosage: 75 MG, QD
     Route: 048
  26. QUETIAPINE FUMARATE. [Concomitant]
     Active Substance: QUETIAPINE FUMARATE
     Dosage: 175 MG, QD
     Route: 048
  27. ABILIFY [Suspect]
     Active Substance: ARIPIPRAZOLE
     Dosage: 6 MG, QD
     Route: 048
  28. TRIHEXYPHENIDYL HYDROCHLORIDE. [Concomitant]
     Active Substance: TRIHEXYPHENIDYL HYDROCHLORIDE
     Dosage: 12 MG, QD
     Route: 048
  29. ZOTEPINE [Concomitant]
     Active Substance: ZOTEPINE
     Dosage: 75 MG, QD
     Route: 048
  30. QUETIAPINE FUMARATE. [Concomitant]
     Active Substance: QUETIAPINE FUMARATE
     Indication: PERSECUTORY DELUSION
     Dosage: 25 MG, QD
     Route: 048

REACTIONS (4)
  - Hallucination, visual [Recovering/Resolving]
  - Drug ineffective [Unknown]
  - Persecutory delusion [Unknown]
  - Psychiatric symptom [Recovering/Resolving]
